FAERS Safety Report 12311399 (Version 1)
Quarter: 2016Q2

REPORT INFORMATION
  Report Type: Spontaneous
  Country: US (occurrence: US)
  Receive Date: 20160427
  Receipt Date: 20160427
  Transmission Date: 20160815
  Serious: Yes (Other)
  Sender: FDA-Public Use
  Company Number: US-TEVA-654341USA

PATIENT
  Age: 47 Year
  Sex: Female
  Weight: 88.53 kg

DRUGS (8)
  1. PERCOCET [Suspect]
     Active Substance: ACETAMINOPHEN\OXYCODONE HYDROCHLORIDE
     Indication: PAIN
     Dates: end: 201602
  2. AMPHETAMINE W/DEXTROAMPHETAMINE [Suspect]
     Active Substance: AMPHETAMINE SULFATE\DEXTROAMPHETAMINE
     Indication: ATTENTION DEFICIT/HYPERACTIVITY DISORDER
     Dosage: 60 MILLIGRAM DAILY;
  3. GRALISE [Suspect]
     Active Substance: GABAPENTIN
     Dates: start: 2015, end: 2015
  4. PERCOCET [Suspect]
     Active Substance: ACETAMINOPHEN\OXYCODONE HYDROCHLORIDE
  5. CYCLOBENZAPRINE [Concomitant]
     Active Substance: CYCLOBENZAPRINE
  6. NICOTINE. [Concomitant]
     Active Substance: NICOTINE
  7. PROPRANOLOL [Concomitant]
     Active Substance: PROPRANOLOL\PROPRANOLOL HYDROCHLORIDE
     Dates: start: 2015
  8. GRALISE [Suspect]
     Active Substance: GABAPENTIN
     Indication: PAIN
     Dosage: 1800 MILLIGRAM DAILY; TITRATED TO 1800 MG
     Dates: start: 2015

REACTIONS (27)
  - Dysuria [Unknown]
  - Amnesia [Recovering/Resolving]
  - Withdrawal syndrome [Unknown]
  - Anxiety [Unknown]
  - Urine odour abnormal [Unknown]
  - Somnolence [Not Recovered/Not Resolved]
  - Inappropriate schedule of drug administration [Unknown]
  - Fatigue [Unknown]
  - Mental fatigue [Unknown]
  - Incontinence [Unknown]
  - Feeling abnormal [Recovered/Resolved]
  - Peripheral swelling [Unknown]
  - Drug prescribing error [Unknown]
  - Drug dose omission [Unknown]
  - Blindness [Not Recovered/Not Resolved]
  - Euphoric mood [Unknown]
  - Abdominal distension [Unknown]
  - Hypersomnia [Unknown]
  - Nausea [Unknown]
  - Off label use [Unknown]
  - Pain [Not Recovered/Not Resolved]
  - Malaise [Unknown]
  - Weight increased [Unknown]
  - Incorrect dose administered [Unknown]
  - Drug ineffective for unapproved indication [Recovered/Resolved]
  - Depressed mood [Recovered/Resolved]
  - Sciatica [Unknown]

NARRATIVE: CASE EVENT DATE: 2015
